FAERS Safety Report 4990099-6 (Version None)
Quarter: 2006Q2

REPORT INFORMATION
  Report Type: 
  Country: None (occurrence: None)
  Receive Date: 20060501
  Receipt Date: 20060501
  Transmission Date: 20061013
  Serious: Yes (Other)
  Sender: FDA-Public Use
  Company Number: None

PATIENT
  Sex: Male
  Weight: 97.0698 kg

DRUGS (1)
  1. VFEND [Suspect]
     Indication: SINUSITIS FUNGAL
     Dosage: 200 MG BID PO
     Route: 048
     Dates: start: 20060315, end: 20060426

REACTIONS (2)
  - DRUG INTERACTION [None]
  - PHOTOPSIA [None]
